FAERS Safety Report 9447636 (Version 1)
Quarter: 2013Q3

REPORT INFORMATION
  Report Type: Spontaneous
  Country: US (occurrence: None)
  Receive Date: 20130807
  Receipt Date: 20130807
  Transmission Date: 20140515
  Serious: Yes (Death, Life-Threatening)
  Sender: FDA-Public Use
  Company Number: None

PATIENT
  Age: 49 Year
  Sex: Male
  Weight: 54.89 kg

DRUGS (1)
  1. ISENTRESS [Suspect]

REACTIONS (2)
  - Hepatitis [None]
  - Hepatic failure [None]
